FAERS Safety Report 15129742 (Version 1)
Quarter: 2018Q3

REPORT INFORMATION
  Report Type: Spontaneous
  Country: US (occurrence: US)
  Receive Date: 20180711
  Receipt Date: 20180711
  Transmission Date: 20181010
  Serious: No
  Sender: FDA-Public Use
  Company Number: US-SA-2018SA182796

PATIENT
  Age: 77 Year
  Sex: Female

DRUGS (3)
  1. ZANTAC [Suspect]
     Active Substance: RANITIDINE HYDROCHLORIDE
     Indication: ARTHROPOD BITE
     Dosage: UNK, BID
  2. BENADRYL ALLERGY [CETIRIZINE HYDROCHLORIDE] [Concomitant]
     Indication: ARTHROPOD BITE
     Dosage: UNK UNK, UNK
  3. ZYRTEC [Concomitant]
     Active Substance: CETIRIZINE HYDROCHLORIDE
     Indication: ARTHROPOD BITE

REACTIONS (3)
  - Lip disorder [Unknown]
  - Malaise [Unknown]
  - Oral herpes [Unknown]
